FAERS Safety Report 8853740 (Version 4)
Quarter: 2014Q3

REPORT INFORMATION
  Report Type: Report from Study
  Country: GB (occurrence: GB)
  Receive Date: 20121022
  Receipt Date: 20140930
  Transmission Date: 20150326
  Serious: Yes (Hospitalization)
  Sender: FDA-Public Use
  Company Number: GB-NOVOPROD-360029

PATIENT
  Age: 73 Year
  Sex: Male
  Weight: 83.2 kg

DRUGS (1)
  1. LIRAGLUTIDE FLEXPEN [Suspect]
     Active Substance: LIRAGLUTIDE
     Indication: TYPE 2 DIABETES MELLITUS
     Dosage: 1.8 MG, QD
     Route: 058
     Dates: start: 20110613

REACTIONS (1)
  - Transitional cell carcinoma [Not Recovered/Not Resolved]

NARRATIVE: CASE EVENT DATE: 20120904
